FAERS Safety Report 6344636-X (Version None)
Quarter: 2009Q3

REPORT INFORMATION
  Report Type: 
  Country: None (occurrence: None)
  Receive Date: 20090903
  Receipt Date: 20090822
  Transmission Date: 20100115
  Serious: Yes (Other)
  Sender: FDA-Public Use
  Company Number: 2009AP003270

PATIENT
  Age: 61 Year
  Sex: Male

DRUGS (3)
  1. ALLOPURINOL [Suspect]
     Indication: GOUT
     Dosage: 200 MG;QD;
  2. ALLOPURINOL [Suspect]
     Indication: MALIGNANT MELANOMA
     Dosage: 200 MG;QD;
  3. PACLITAXEL [Suspect]
     Indication: METASTASES TO LUNG
     Dosage: 200 MG/M**2;

REACTIONS (3)
  - CONDITION AGGRAVATED [None]
  - DRUG INTERACTION [None]
  - GOUT [None]
